FAERS Safety Report 7205447-6 (Version None)
Quarter: 2010Q4

REPORT INFORMATION
  Report Type: 
  Country: None (occurrence: None)
  Receive Date: 20101231
  Receipt Date: 20101221
  Transmission Date: 20110411
  Serious: Yes (Hospitalization, Other)
  Sender: FDA-Public Use
  Company Number: PHHY2010CA51589

PATIENT
  Sex: Male

DRUGS (6)
  1. SANDOSTATIN [Suspect]
     Indication: CARCINOID TUMOUR OF THE SMALL BOWEL
     Dosage: 5 UG, TID
     Route: 058
     Dates: start: 20100422
  2. SANDOSTATIN [Suspect]
     Dosage: 30 MG EVERY 4 WEEKS
     Route: 030
     Dates: start: 20100822
  3. SANDOSTATIN LAR [Suspect]
     Indication: SMALL INTESTINE CARCINOMA
     Dosage: 30 MG, QMO
     Route: 030
     Dates: start: 20100822
  4. RANITIDINE [Concomitant]
     Dosage: 150 MG, BID
  5. PROPRANOLOL [Concomitant]
     Dosage: 20 MG, TID
     Dates: start: 20101219
  6. RASILEZ D [Concomitant]
     Dosage: 300 MG, QD

REACTIONS (10)
  - ABDOMINAL PAIN UPPER [None]
  - CARDIAC MURMUR [None]
  - CHEST PAIN [None]
  - DIARRHOEA [None]
  - FALL [None]
  - FLUSHING [None]
  - HYPOAESTHESIA [None]
  - LUNG NEOPLASM [None]
  - NAUSEA [None]
  - RETCHING [None]
